FAERS Safety Report 15869859 (Version 1)
Quarter: 2019Q1

REPORT INFORMATION
  Report Type: Spontaneous
  Country: US (occurrence: US)
  Receive Date: 20190125
  Receipt Date: 20190125
  Transmission Date: 20190417
  Serious: Yes (Life-Threatening)
  Sender: FDA-Public Use
  Company Number: US-THE PROACTIV LLC-2061777

PATIENT
  Age: 17 Year
  Sex: Female

DRUGS (6)
  1. PROACTIV MD ADAPALENE ACNE TREATMENT [Concomitant]
     Active Substance: ADAPALENE
     Route: 003
     Dates: start: 20181225, end: 20181227
  2. PROACTIV GREEN TEA MOISTURIZER [Suspect]
     Active Substance: COSMETICS
     Route: 003
     Dates: start: 20181225, end: 20181227
  3. PROACTIV BLACKHEAD DISSOLVING [Suspect]
     Active Substance: SALICYLIC ACID
     Route: 003
     Dates: start: 20181225, end: 20181227
  4. PROACTIV MD DEEP CLEANSING FACE WASH [Suspect]
     Active Substance: COSMETICS
     Route: 003
     Dates: start: 20181225, end: 20181227
  5. PROACTIV SOLUTION DEEP CLEANSING WASH [Suspect]
     Active Substance: SALICYLIC ACID
     Indication: ACNE
     Route: 003
     Dates: start: 20181225, end: 20181227
  6. PROACTIV MD DAILY OIL CONTROL SPF 30 [Concomitant]
     Active Substance: AVOBENZONE\OCTISALATE\OCTOCRYLENE
     Route: 003
     Dates: end: 20181227

REACTIONS (4)
  - Dermatitis [Recovered/Resolved]
  - Dyspnoea [Recovered/Resolved]
  - Erythema [Recovered/Resolved]
  - Hypersensitivity [Recovered/Resolved]

NARRATIVE: CASE EVENT DATE: 20181225
